FAERS Safety Report 6040426-6 (Version None)
Quarter: 2009Q1

REPORT INFORMATION
  Report Type: 
  Country: None (occurrence: None)
  Receive Date: 20090116
  Receipt Date: 20080307
  Transmission Date: 20090719
  Serious: No
  Sender: FDA-Public Use
  Company Number: US-BRISTOL-MYERS SQUIBB COMPANY-14107478

PATIENT
  Age: 47 Year
  Sex: Female

DRUGS (6)
  1. ABILIFY [Suspect]
     Dosage: INITIALLY STARTED 1-1/2YEARS AGO,RESTARED ON 10/2007 AT 5-10MG DAILY, ON 29-FEB-2008 DRUG WITHDRAWN
     Dates: start: 20071001, end: 20080229
  2. LITHOBID [Concomitant]
  3. TRAZODONE HCL [Concomitant]
  4. RISPERDAL [Concomitant]
  5. PRILOSEC [Concomitant]
  6. PROZAC [Concomitant]

REACTIONS (1)
  - NAUSEA [None]
